FAERS Safety Report 7929883-5 (Version None)
Quarter: 2011Q4

REPORT INFORMATION
  Report Type: 
  Country: None (occurrence: None)
  Receive Date: 20111121
  Receipt Date: 20111117
  Transmission Date: 20120403
  Serious: No
  Sender: FDA-Public Use
  Company Number: US-PFIZER INC-2011283229

PATIENT
  Sex: Female
  Weight: 72.562 kg

DRUGS (7)
  1. SYNTHROID [Concomitant]
     Indication: HYPOTHYROIDISM
     Dosage: 75 UG, DAILY
  2. HYDRALAZINE [Concomitant]
     Indication: HYPERTENSION
     Dosage: 50 MG, 2X/DAY
  3. IMDUR [Concomitant]
     Indication: CARDIAC DISORDER
     Dosage: 30 MG, DAILY
  4. LYRICA [Suspect]
     Indication: NEUROPATHY PERIPHERAL
     Dosage: 75 MG, DAILY AT NIGHT
     Dates: start: 20111115, end: 20111117
  5. VYTORIN [Concomitant]
     Indication: BLOOD CHOLESTEROL INCREASED
     Dosage: 10/40 MG, DAILY
  6. LASIX [Concomitant]
     Indication: HYPERTENSION
     Dosage: 40 MG, DAILY
  7. NORCO [Concomitant]
     Indication: PAIN
     Dosage: 5/325 MG EVERY SIX HOURS

REACTIONS (2)
  - NAUSEA [None]
  - ABDOMINAL DISCOMFORT [None]
